FAERS Safety Report 20814670 (Version 4)
Quarter: 2022Q4

REPORT INFORMATION
  Report Type: Spontaneous
  Country: US (occurrence: US)
  Receive Date: 20220511
  Receipt Date: 20221012
  Transmission Date: 20230113
  Serious: No
  Sender: FDA-Public Use
  Company Number: US-BRISTOL-MYERS SQUIBB COMPANY-2022-027589

PATIENT
  Age: 74 Year
  Sex: Male
  Weight: 94.8 kg

DRUGS (4)
  1. REVLIMID [Suspect]
     Active Substance: LENALIDOMIDE
     Indication: Plasma cell myeloma
     Dosage: 1 CAP DAILY, DAYS 1-21 OF EACH 35 DAY CYCLE?DRUG ONGOING
     Route: 048
     Dates: start: 20211201
  2. REVLIMID [Suspect]
     Active Substance: LENALIDOMIDE
     Indication: Plasma cell myeloma
     Route: 048
     Dates: start: 20220609
  3. REVLIMID [Suspect]
     Active Substance: LENALIDOMIDE
     Dosage: FREQUENCY: DAILY X 21 DAYS ON AND 7 DAYS OFF.
     Route: 048
     Dates: start: 20211201
  4. REVLIMID [Suspect]
     Active Substance: LENALIDOMIDE
     Dosage: FREQ - DAYS 1-14 2 28 DAYS
     Route: 048
     Dates: start: 20211201

REACTIONS (4)
  - Fatigue [Not Recovered/Not Resolved]
  - Fatigue [Unknown]
  - Full blood count decreased [Unknown]
  - Off label use [Unknown]

NARRATIVE: CASE EVENT DATE: 20211201
